FAERS Safety Report 9116861 (Version 3)
Quarter: 2015Q2

REPORT INFORMATION
  Report Type: Spontaneous
  Country: BR (occurrence: BR)
  Receive Date: 20130225
  Receipt Date: 20150511
  Transmission Date: 20150821
  Serious: Yes (Hospitalization, Other)
  Sender: FDA-Public Use
  Company Number: PHHY2013BR005909

PATIENT
  Sex: Female
  Weight: 54 kg

DRUGS (8)
  1. PURAN [Concomitant]
     Active Substance: LEVOTHYROXINE SODIUM
     Indication: HYPOTHYROIDISM
     Dosage: 1 DF, DAILY
     Route: 048
  2. LYRICA [Concomitant]
     Active Substance: PREGABALIN
     Indication: HYPOAESTHESIA
     Dosage: 1 DF, Q12H
     Route: 048
  3. NEURONTIN [Concomitant]
     Active Substance: GABAPENTIN
     Indication: HYPOAESTHESIA
     Dosage: UNK UKN, UNK
  4. TEGRETOL [Suspect]
     Active Substance: CARBAMAZEPINE
     Indication: TRIGEMINAL NEURALGIA
     Dosage: 400 MG, Q6H (400 MG OR LESS EVERY 6 HOURS)
     Route: 048
  5. TEGRETOL CR [Suspect]
     Active Substance: CARBAMAZEPINE
     Indication: TRIGEMINAL NEURALGIA
     Dosage: 2 DF, Q6H
     Route: 048
     Dates: start: 2000
  6. LUDIOMIL [Suspect]
     Active Substance: MAPROTILINE HYDROCHLORIDE
     Indication: DEPRESSION
     Dosage: 0.5 DF, DAILY
     Route: 048
     Dates: end: 20120426
  7. LEXOTAN [Suspect]
     Active Substance: BROMAZEPAM
     Indication: ANXIETY
     Dosage: 0.5 DF, DAILY
     Route: 048
     Dates: end: 20120426
  8. EXELON [Concomitant]
     Active Substance: RIVASTIGMINE TARTRATE
     Dosage: UNK UKN, UNK

REACTIONS (19)
  - Drug intolerance [Unknown]
  - Salivary hypersecretion [Unknown]
  - Limb asymmetry [Unknown]
  - Nausea [Recovered/Resolved]
  - Wrong technique in drug usage process [Unknown]
  - Trigeminal neuralgia [Recovered/Resolved with Sequelae]
  - Bone lesion [Unknown]
  - Malaise [Unknown]
  - Dizziness [Recovered/Resolved]
  - Ocular hyperaemia [Unknown]
  - Dry mouth [Unknown]
  - Cataract [Recovered/Resolved]
  - Hunger [Unknown]
  - Hallucination, visual [Unknown]
  - Hypoaesthesia [Unknown]
  - Nasal pruritus [Unknown]
  - Body height decreased [Not Recovered/Not Resolved]
  - Anxiety [Unknown]
  - Confusional state [Unknown]

NARRATIVE: CASE EVENT DATE: 2000
